FAERS Safety Report 8305109-8 (Version None)
Quarter: 2012Q2

REPORT INFORMATION
  Report Type: 
  Country: None (occurrence: None)
  Receive Date: 20120413
  Receipt Date: 20120405
  Transmission Date: 20120825
  Serious: Yes (Death, Hospitalization)
  Sender: FDA-Public Use
  Company Number: 2012PROUSA01153

PATIENT
  Age: 87 Year
  Sex: Male
  Weight: 62.6 kg

DRUGS (14)
  1. CALCIUM + VITAMIN D /01483701/ (CALCIUM, COLECALCIFEROL) [Concomitant]
  2. OMEPRAZOLE [Concomitant]
  3. PROVENGE [Suspect]
  4. DUTASTERIDE (DUTASTERIDE) [Concomitant]
  5. PRAVASTATIN SODIUM [Concomitant]
  6. LOSARTAN POTASSIUM [Concomitant]
  7. PLAVIX [Concomitant]
  8. MEGACE [Concomitant]
  9. CHOLECALCIFEROL (COLECALCIFEROL) [Concomitant]
  10. ZETIA [Concomitant]
  11. PROVENGE [Suspect]
     Indication: PROSTATE CANCER METASTATIC
     Dosage: 250 ML, SINGLE, INTRAVENOUS, 250 ML, SINGLE, INTRAVENOUS
     Route: 042
     Dates: start: 20120213, end: 20120213
  12. PROVENGE [Suspect]
     Indication: PROSTATE CANCER METASTATIC
     Dosage: 250 ML, SINGLE, INTRAVENOUS, 250 ML, SINGLE, INTRAVENOUS
     Route: 042
     Dates: start: 20120227, end: 20120227
  13. METOPROLOL SUCCINATE [Concomitant]
  14. MULTIVITAMINS (ASCORBIC ACID, ERGOCALCIFEROL, FOLIC ACID, NICOTINAMIDE [Concomitant]

REACTIONS (4)
  - VOMITING [None]
  - DIARRHOEA [None]
  - CARDIAC FAILURE CONGESTIVE [None]
  - NAUSEA [None]
